FAERS Safety Report 20035041 (Version 1)
Quarter: 2021Q4

REPORT INFORMATION
  Report Type: Spontaneous
  Country: FR (occurrence: FR)
  Receive Date: 20211104
  Receipt Date: 20211104
  Transmission Date: 20220303
  Serious: Yes (Other)
  Sender: FDA-Public Use
  Company Number: None

PATIENT
  Age: 66 Year
  Sex: Male

DRUGS (4)
  1. BISOPROLOL [Suspect]
     Active Substance: BISOPROLOL
     Indication: Angiocardiogram
     Dosage: 2.5 MILLIGRAM, QD
     Route: 048
     Dates: start: 20210625, end: 20210629
  2. RAMIPRIL [Suspect]
     Active Substance: RAMIPRIL
     Indication: Angiocardiogram
     Dosage: 1.25 MILLIGRAM, QD
     Route: 048
     Dates: start: 20210625, end: 20210629
  3. VISIPAQUE [Suspect]
     Active Substance: IODIXANOL
     Indication: Angiocardiogram
     Dosage: 60 MILLILITER, TOTAL
     Route: 042
     Dates: start: 20210625, end: 20210625
  4. ATARAX [Suspect]
     Active Substance: HYDROXYZINE HYDROCHLORIDE
     Indication: Product used for unknown indication
     Dosage: 2 DOSAGE FORM, QD
     Route: 048
     Dates: start: 20210623, end: 20210623

REACTIONS (1)
  - Acute generalised exanthematous pustulosis [Recovered/Resolved]

NARRATIVE: CASE EVENT DATE: 20210630
